FAERS Safety Report 8002901-4 (Version None)
Quarter: 2011Q4

REPORT INFORMATION
  Report Type: 
  Country: None (occurrence: None)
  Receive Date: 20111222
  Receipt Date: 20110302
  Transmission Date: 20120403
  Serious: No
  Sender: FDA-Public Use
  Company Number: US-GLAXOSMITHKLINE-A0916349A

PATIENT
  Age: 76 Year
  Sex: Male

DRUGS (8)
  1. AVODART [Suspect]
     Indication: URINARY RETENTION
     Dosage: 1CAP PER DAY
     Route: 048
     Dates: start: 20071001
  2. CLONAZEPAM [Concomitant]
  3. NEXIUM [Concomitant]
  4. MULTI-VITAMIN [Concomitant]
  5. OSTEO BI-FLEX [Concomitant]
  6. SAW PALMETTO [Concomitant]
  7. VIT C [Concomitant]
  8. FISH OILS [Concomitant]

REACTIONS (1)
  - ERECTILE DYSFUNCTION [None]
